FAERS Safety Report 14034870 (Version 1)
Quarter: 2017Q4

REPORT INFORMATION
  Report Type: Spontaneous
  Country: US (occurrence: None)
  Receive Date: 20171003
  Receipt Date: 20171003
  Transmission Date: 20180321
  Serious: Yes (Other)
  Sender: FDA-Public Use
  Company Number: None

PATIENT
  Age: 64 Year
  Sex: Female
  Weight: 62.14 kg

DRUGS (8)
  1. METFORMIN [Concomitant]
     Active Substance: METFORMIN HYDROCHLORIDE
  2. TRAZEDONE [Concomitant]
  3. ALLEGRA [Concomitant]
     Active Substance: FEXOFENADINE HYDROCHLORIDE
  4. GUANFACINE. [Suspect]
     Active Substance: GUANFACINE
     Indication: ANXIETY
     Dosage: 1 PILL 1XDAY ORALLY
     Route: 048
     Dates: start: 20170909, end: 20170916
  5. OMEGA 3 [Concomitant]
     Active Substance: OMEGA-3 FATTY ACIDS
  6. GABAPENTEN [Concomitant]
     Active Substance: GABAPENTIN
  7. VITAMIN B COMPLEX [Concomitant]
     Active Substance: CYANOCOBALAMIN\DEXPANTHENOL\NIACINAMIDE\PYRIDOXINE HYDROCHLORIDE\RIBOFLAVIN 5^-PHOSPHATE SODIUM\THIAMINE HYDROCHLORIDE\VITAMIN B COMPLEX
  8. GLUCOSAMINE/CONDROITIN [Concomitant]

REACTIONS (8)
  - Insomnia [None]
  - Decreased appetite [None]
  - Paranoia [None]
  - Suicidal ideation [None]
  - Crying [None]
  - Mania [None]
  - Fear [None]
  - Disturbance in attention [None]

NARRATIVE: CASE EVENT DATE: 20170906
